FAERS Safety Report 5824517-8 (Version None)
Quarter: 2008Q3

REPORT INFORMATION
  Report Type: 
  Country: None (occurrence: None)
  Receive Date: 20080728
  Receipt Date: 20080723
  Transmission Date: 20090109
  Serious: Yes (Other)
  Sender: FDA-Public Use
  Company Number: GR-JNJFOC-20080705853

PATIENT
  Age: 75 Year
  Sex: Male

DRUGS (3)
  1. TAVANIC [Suspect]
     Indication: PROSTATITIS
     Dosage: RECEIVED TREATMENT FOR 10 DAYS.
     Route: 048
  2. PLENDIL [Concomitant]
     Indication: HYPERTENSION
     Route: 065
  3. ACETYLSALICYLIC ACID SRT [Concomitant]
     Route: 065

REACTIONS (5)
  - DEPRESSION [None]
  - HYPOAESTHESIA [None]
  - LEUKOPENIA [None]
  - MEMORY IMPAIRMENT [None]
  - SUICIDAL IDEATION [None]
